FAERS Safety Report 8616388 (Version 3)
Quarter: 2013Q4

REPORT INFORMATION
  Report Type: Spontaneous
  Country: AR (occurrence: AR)
  Receive Date: 20120615
  Receipt Date: 20131011
  Transmission Date: 20140711
  Serious: Yes (Other)
  Sender: FDA-Public Use
  Company Number: AR-AMGEN-ARGSP2012036169

PATIENT
  Age: 40 Year
  Sex: Female

DRUGS (1)
  1. ENBREL [Suspect]
     Indication: RHEUMATOID ARTHRITIS
     Dosage: 50 MG, WEEKLY
     Route: 058
     Dates: start: 20080314, end: 201203

REACTIONS (4)
  - Glomerulonephritis membranoproliferative [Recovering/Resolving]
  - Discomfort [Recovering/Resolving]
  - Nephrotic syndrome [Not Recovered/Not Resolved]
  - Protein total decreased [Not Recovered/Not Resolved]
